FAERS Safety Report 22736881 (Version 15)
Quarter: 2025Q1

REPORT INFORMATION
  Report Type: Report from Study
  Country: US (occurrence: US)
  Receive Date: 20230721
  Receipt Date: 20250129
  Transmission Date: 20250408
  Serious: Yes (Hospitalization, Other)
  Sender: TAKEDA
  Company Number: US-TAKEDA-2023TUS069006

PATIENT
  Age: 78 Year
  Sex: Female
  Weight: 67 kg

DRUGS (36)
  1. HUMAN IMMUNOGLOBULIN G [Suspect]
     Active Substance: HUMAN IMMUNOGLOBULIN G
     Indication: Selective IgG subclass deficiency
     Dosage: 25 GRAM, Q4WEEKS
     Dates: start: 20230626
  2. HUMAN IMMUNOGLOBULIN G [Suspect]
     Active Substance: HUMAN IMMUNOGLOBULIN G
     Indication: Immunodeficiency common variable
     Dosage: UNK, MONTHLY
  3. HUMAN IMMUNOGLOBULIN G [Suspect]
     Active Substance: HUMAN IMMUNOGLOBULIN G
     Dosage: 25 GRAM, Q4WEEKS
  4. HUMAN IMMUNOGLOBULIN G [Suspect]
     Active Substance: HUMAN IMMUNOGLOBULIN G
     Dosage: 8.5 GRAM, 1/WEEK
  5. BENADRYL [Suspect]
     Active Substance: DIPHENHYDRAMINE HYDROCHLORIDE
     Indication: Product used for unknown indication
  6. EPINEPHRINE [Concomitant]
     Active Substance: EPINEPHRINE
  7. ACETAMINOPHEN [Concomitant]
     Active Substance: ACETAMINOPHEN
  8. ATORVASTATIN CALCIUM [Concomitant]
     Active Substance: ATORVASTATIN CALCIUM
  9. BIOTIN [Concomitant]
     Active Substance: BIOTIN
  10. VITAMIN B [Concomitant]
     Active Substance: VITAMIN B
  11. POTASSIUM [Concomitant]
     Active Substance: POTASSIUM
  12. DIPHENHYDRAMINE HYDROCHLORIDE [Concomitant]
     Active Substance: DIPHENHYDRAMINE HYDROCHLORIDE
  13. COENZYME Q10 [Concomitant]
     Active Substance: DIETARY SUPPLEMENT\UBIDECARENONE
  14. OMEGA 3 [Concomitant]
     Active Substance: CAPSAICIN
  15. SODIUM CHLORIDE [Concomitant]
     Active Substance: SODIUM CHLORIDE
  16. PREGABALIN [Concomitant]
     Active Substance: PREGABALIN
  17. HERBALS\TURMERIC [Concomitant]
     Active Substance: HERBALS\TURMERIC
  18. CALCIUM CITRATE + D3 [Concomitant]
  19. CETIRIZINE HYDROCHLORIDE [Concomitant]
     Active Substance: CETIRIZINE HYDROCHLORIDE
  20. OXYGEN [Concomitant]
     Active Substance: OXYGEN
  21. MIDODRINE HYDROCHLORIDE [Concomitant]
     Active Substance: MIDODRINE HYDROCHLORIDE
  22. VITAMIN C [Concomitant]
     Active Substance: ASCORBIC ACID
  23. SODIUM CHLORIDE [Concomitant]
     Active Substance: SODIUM CHLORIDE
  24. MAGNESIUM [Concomitant]
     Active Substance: MAGNESIUM
  25. MYRBETRIQ [Concomitant]
     Active Substance: MIRABEGRON
  26. FLUOXETINE HYDROCHLORIDE [Concomitant]
     Active Substance: FLUOXETINE HYDROCHLORIDE
  27. LIDOCAINE [Concomitant]
     Active Substance: LIDOCAINE
  28. PANTOPRAZOLE SODIUM [Concomitant]
     Active Substance: PANTOPRAZOLE SODIUM
  29. VITAMIN D3 [Concomitant]
     Active Substance: CHOLECALCIFEROL
  30. VITAMIN D [Concomitant]
     Active Substance: VITAMIN D NOS
  31. WELLBUTRIN SR [Concomitant]
     Active Substance: BUPROPION HYDROCHLORIDE
  32. Omega [Concomitant]
  33. DICYCLOMINE HYDROCHLORIDE [Concomitant]
     Active Substance: DICYCLOMINE HYDROCHLORIDE
  34. FAMOTIDINE [Concomitant]
     Active Substance: FAMOTIDINE
  35. ALBUTEROL SULFATE [Concomitant]
     Active Substance: ALBUTEROL SULFATE
  36. AIRBORNE [Concomitant]
     Active Substance: HERBALS\MINERALS\VITAMINS

REACTIONS (20)
  - Procedural complication [Unknown]
  - Post procedural sepsis [Unknown]
  - Urinary tract infection fungal [Unknown]
  - Urosepsis [Unknown]
  - Fungal infection [Unknown]
  - Intestinal prolapse [Unknown]
  - Cataract [Unknown]
  - Kidney infection [Unknown]
  - Bell^s palsy [Unknown]
  - Illness [Unknown]
  - Memory impairment [Unknown]
  - Bacterial infection [Unknown]
  - COVID-19 [Unknown]
  - Somnolence [Unknown]
  - Infusion site oedema [Unknown]
  - Infusion site extravasation [Unknown]
  - Abdominal pain upper [Unknown]
  - Vomiting [Unknown]
  - Diarrhoea [Unknown]
  - Fatigue [Not Recovered/Not Resolved]

NARRATIVE: CASE EVENT DATE: 20230925
